FAERS Safety Report 21494884 (Version 1)
Quarter: 2022Q4

REPORT INFORMATION
  Report Type: Spontaneous
  Country: AU (occurrence: AU)
  Receive Date: 20221022
  Receipt Date: 20221022
  Transmission Date: 20230113
  Serious: Yes (Other)
  Sender: FDA-Public Use
  Company Number: AU-NOVARTISPH-NVSC2022AU235049

PATIENT

DRUGS (4)
  1. DOXYCYCLINE [Suspect]
     Active Substance: DOXYCYCLINE
     Indication: Mycoplasma genitalium infection
     Dosage: 100 MG, BID
     Route: 065
  2. DOXYCYCLINE [Suspect]
     Active Substance: DOXYCYCLINE
     Dosage: 100 MG, BID DAYS1-4
     Route: 065
  3. AZITHROMYCIN [Suspect]
     Active Substance: AZITHROMYCIN
     Indication: Mycoplasma genitalium infection
     Dosage: 1 G, DAY1
     Route: 065
  4. AZITHROMYCIN [Suspect]
     Active Substance: AZITHROMYCIN
     Dosage: 500 MG, QD, DAYS 2-4
     Route: 065

REACTIONS (3)
  - Pathogen resistance [Unknown]
  - Treatment failure [Unknown]
  - Product use in unapproved indication [Unknown]
